FAERS Safety Report 13235470 (Version 1)
Quarter: 2017Q1

REPORT INFORMATION
  Report Type: Spontaneous
  Country: US (occurrence: US)
  Receive Date: 20170215
  Receipt Date: 20170215
  Transmission Date: 20170428
  Serious: No
  Sender: FDA-Public Use
  Company Number: US-MYLANLABS-2016M1047204

PATIENT
  Sex: Male
  Weight: 99.77 kg

DRUGS (2)
  1. ROSUVASTATIN CALCIUM TABLETS [Suspect]
     Active Substance: ROSUVASTATIN CALCIUM
     Indication: PRODUCT USED FOR UNKNOWN INDICATION
     Dosage: 10 MG, QD
     Route: 048
     Dates: start: 201609
  2. ASA [Concomitant]
     Active Substance: ASPIRIN
     Indication: PRODUCT USED FOR UNKNOWN INDICATION
     Dosage: UNK

REACTIONS (5)
  - Muscle spasms [Not Recovered/Not Resolved]
  - Gluten sensitivity [Not Recovered/Not Resolved]
  - Dizziness [Not Recovered/Not Resolved]
  - Feeling jittery [Not Recovered/Not Resolved]
  - Feeling abnormal [Not Recovered/Not Resolved]
